FAERS Safety Report 7048803-1 (Version None)
Quarter: 2010Q4

REPORT INFORMATION
  Report Type: 
  Country: None (occurrence: None)
  Receive Date: 20101018
  Receipt Date: 20101011
  Transmission Date: 20110411
  Serious: Yes (Death, Other)
  Sender: FDA-Public Use
  Company Number: PHHY2010US67842

PATIENT
  Sex: Female

DRUGS (3)
  1. CGP 57148B T35717+ [Suspect]
     Indication: GASTROINTESTINAL STROMAL TUMOUR
     Dosage: 400 MG, QD
     Dates: start: 20100910, end: 20100930
  2. VANCOMYCIN [Concomitant]
     Indication: NEUTROPENIC SEPSIS
     Dosage: UNK
     Dates: start: 20101003
  3. ZOSYN [Concomitant]
     Indication: NEUTROPENIC SEPSIS
     Dosage: UNK
     Dates: start: 20101003

REACTIONS (9)
  - ASTHENIA [None]
  - COUGH [None]
  - GASTROINTESTINAL STROMAL TUMOUR [None]
  - MALIGNANT NEOPLASM PROGRESSION [None]
  - NEUTROPENIA [None]
  - NEUTROPENIC SEPSIS [None]
  - PNEUMONIA [None]
  - PYREXIA [None]
  - SUPERIOR VENA CAVAL OCCLUSION [None]
